FAERS Safety Report 9718217 (Version 2)
Quarter: 2013Q4

REPORT INFORMATION
  Report Type: Spontaneous
  Country: JP (occurrence: JP)
  Receive Date: 20131127
  Receipt Date: 20131127
  Transmission Date: 20140711
  Serious: Yes (Other)
  Sender: FDA-Public Use
  Company Number: JP-BRISTOL-MYERS SQUIBB COMPANY-19392729

PATIENT
  Age: 74 Year
  Sex: Female

DRUGS (2)
  1. PARAPLATIN INJ [Suspect]
     Indication: OVARIAN CANCER
     Dosage: 1DF: AUC 5?450MG
     Route: 042
     Dates: start: 20120627
  2. PACLITAXEL [Suspect]
     Indication: OVARIAN CANCER
     Route: 042

REACTIONS (4)
  - Malignant neoplasm progression [Unknown]
  - Surgery [Unknown]
  - Feeling abnormal [Recovered/Resolved]
  - Electrocardiogram change [Recovered/Resolved]
